FAERS Safety Report 8471013-8 (Version None)
Quarter: 2012Q2

REPORT INFORMATION
  Report Type: 
  Country: None (occurrence: None)
  Receive Date: 20120627
  Receipt Date: 20120614
  Transmission Date: 20120825
  Serious: Yes (Hospitalization)
  Sender: FDA-Public Use
  Company Number: US-ELI_LILLY_AND_COMPANY-US201203006925

PATIENT
  Sex: Male

DRUGS (5)
  1. FORTEO [Suspect]
     Dosage: 20 UG, QD
     Dates: start: 20120301
  2. FORTEO [Suspect]
     Dosage: 20 UG, QD
     Route: 065
  3. FORTEO [Suspect]
     Indication: OSTEOPOROSIS
     Dosage: 20 UG, QD
  4. FORTEO [Suspect]
     Dosage: 20 UG, QD
     Route: 065
  5. FORTEO [Suspect]
     Dosage: 20 UG, QD

REACTIONS (10)
  - DYSSTASIA [None]
  - MUSCULAR WEAKNESS [None]
  - LISTLESS [None]
  - LETHARGY [None]
  - FATIGUE [None]
  - SPINAL OPERATION [None]
  - GAIT DISTURBANCE [None]
  - NECK PAIN [None]
  - POST PROCEDURAL COMPLICATION [None]
  - HYPOAESTHESIA [None]
